FAERS Safety Report 8435598-X (Version None)
Quarter: 2012Q2

REPORT INFORMATION
  Report Type: 
  Country: None (occurrence: None)
  Receive Date: 20120614
  Receipt Date: 20120605
  Transmission Date: 20120825
  Serious: Yes (Hospitalization)
  Sender: FDA-Public Use
  Company Number: CA-ABBOTT-12P-028-0903070-00

PATIENT
  Sex: Female
  Weight: 93 kg

DRUGS (10)
  1. HUMIRA [Suspect]
     Route: 058
     Dates: start: 20110525
  2. HUMIRA [Suspect]
     Indication: CROHN'S DISEASE
     Dosage: ONCE
     Route: 058
     Dates: start: 20110427, end: 20110427
  3. VITAMIN B-12 [Concomitant]
     Indication: PRODUCT USED FOR UNKNOWN INDICATION
     Route: 048
     Dates: start: 20090101
  4. PREDNISONE TAB [Concomitant]
     Dates: start: 20120222
  5. OMEPRAZOLE [Concomitant]
     Indication: PRODUCT USED FOR UNKNOWN INDICATION
     Route: 048
     Dates: start: 19960529
  6. HUMIRA [Suspect]
     Dosage: ONCE
     Route: 058
     Dates: start: 20110511, end: 20110511
  7. IMURAN [Concomitant]
     Indication: PRODUCT USED FOR UNKNOWN INDICATION
     Route: 048
     Dates: start: 20110303
  8. PREDNISONE TAB [Concomitant]
     Indication: PRODUCT USED FOR UNKNOWN INDICATION
     Route: 048
     Dates: start: 20120125, end: 20120207
  9. SYNTHROID [Concomitant]
     Indication: PRODUCT USED FOR UNKNOWN INDICATION
     Route: 048
  10. PERINDOPRIL ERBUMINE [Concomitant]
     Indication: PRODUCT USED FOR UNKNOWN INDICATION
     Route: 048

REACTIONS (6)
  - CONTUSION [None]
  - HYPOKALAEMIA [None]
  - COLONIC FISTULA [None]
  - RIB FRACTURE [None]
  - PULMONARY EMBOLISM [None]
  - CELLULITIS [None]
